FAERS Safety Report 12426138 (Version 1)
Quarter: 2016Q2

REPORT INFORMATION
  Report Type: Spontaneous
  Country: FR (occurrence: FR)
  Receive Date: 20160601
  Receipt Date: 20160601
  Transmission Date: 20160815
  Serious: Yes (Hospitalization)
  Sender: FDA-Public Use
  Company Number: FR-PFIZER INC-2016275639

PATIENT
  Age: 77 Year
  Sex: Female

DRUGS (10)
  1. ATACAND [Concomitant]
     Active Substance: CANDESARTAN CILEXETIL
     Dosage: UNK
  2. DALACINE [Suspect]
     Active Substance: CLINDAMYCIN HYDROCHLORIDE
     Indication: ENDOCARDITIS
     Dosage: 1800 MG (300MG AT 6 DFS), DAILY
     Route: 048
     Dates: start: 20160309, end: 20160330
  3. ELIQUIS [Concomitant]
     Active Substance: APIXABAN
     Dosage: UNK
  4. NEORECORMON [Concomitant]
     Active Substance: ERYTHROPOIETIN
     Dosage: UNK
  5. CORTANCYL [Concomitant]
     Active Substance: PREDNISONE
     Dosage: UNK
  6. MOVICOL [Concomitant]
     Active Substance: POLYETHYLENE GLYCOL 3350\POTASSIUM CHLORIDE\SODIUM BICARBONATE\SODIUM CHLORIDE
     Dosage: UNK
  7. HEMIGOXINE NATIVELLE [Concomitant]
     Active Substance: DIGOXIN
     Dosage: UNK
  8. ESCITALOPRAM [Concomitant]
     Active Substance: ESCITALOPRAM OXALATE
     Dosage: UNK
  9. LASILIX /00032601/ [Concomitant]
     Active Substance: FUROSEMIDE
  10. LEVOFLOXACINE ACTAVIS [Suspect]
     Active Substance: LEVOFLOXACIN
     Indication: ENDOCARDITIS
     Dosage: 500 MG, DAILY
     Route: 048
     Dates: start: 20160309, end: 20160330

REACTIONS (2)
  - Cheilitis [Recovering/Resolving]
  - Rash maculo-papular [Recovering/Resolving]

NARRATIVE: CASE EVENT DATE: 20160327
